FAERS Safety Report 9623544 (Version 1)
Quarter: 2013Q4

REPORT INFORMATION
  Report Type: Spontaneous
  Country: JP (occurrence: None)
  Receive Date: 20131010
  Receipt Date: 20131010
  Transmission Date: 20140711
  Serious: Yes (Other)
  Sender: FDA-Public Use
  Company Number: CO-OR-JP-2013-118

PATIENT
  Age: 16 Year
  Sex: Female

DRUGS (2)
  1. PREDNISOLONE [Suspect]
     Dosage: ON ALTERNATE DAYS.
     Route: 048
  2. AZATHIOPRINE [Concomitant]

REACTIONS (2)
  - Altered state of consciousness [None]
  - Hemiparesis [None]
